FAERS Safety Report 7823470-5 (Version None)
Quarter: 2011Q4

REPORT INFORMATION
  Report Type: 
  Country: None (occurrence: None)
  Receive Date: 20111019
  Receipt Date: 20111005
  Transmission Date: 20120403
  Serious: Yes (Death, Hospitalization)
  Sender: FDA-Public Use
  Company Number: JP-JNJFOC-20091003547

PATIENT
  Age: 23 Year
  Sex: Female

DRUGS (37)
  1. TOPIRAMATE [Suspect]
     Indication: EPILEPSY
     Route: 048
     Dates: start: 20090601, end: 20090607
  2. TOPIRAMATE [Suspect]
     Route: 048
     Dates: start: 20090711, end: 20090717
  3. TEGRETOL [Suspect]
     Indication: EPILEPSY
     Route: 048
     Dates: start: 20010101, end: 20090625
  4. TEGRETOL [Suspect]
     Route: 048
     Dates: start: 20091006, end: 20100402
  5. TEGRETOL [Suspect]
     Route: 048
     Dates: start: 20090814, end: 20091005
  6. TOPIRAMATE [Suspect]
     Route: 048
     Dates: start: 20090608, end: 20090609
  7. TOPIRAMATE [Suspect]
     Route: 048
     Dates: start: 20090610, end: 20090611
  8. TOPIRAMATE [Suspect]
     Route: 048
     Dates: start: 20090718, end: 20091012
  9. FAMOTIDINE [Concomitant]
     Route: 048
     Dates: start: 20090310, end: 20100402
  10. PRAVASTATIN SODIUM [Concomitant]
     Route: 048
     Dates: start: 20100210, end: 20100402
  11. TOPIRAMATE [Suspect]
     Route: 048
     Dates: start: 20090711, end: 20090717
  12. TOPIRAMATE [Suspect]
     Indication: ENCEPHALITIS
     Route: 048
     Dates: start: 20090610, end: 20090611
  13. MIDAZOLAM HCL [Suspect]
     Route: 048
     Dates: start: 20090813, end: 20090814
  14. BIFIDOBACTERIUM [Concomitant]
     Route: 048
     Dates: start: 20090310, end: 20100402
  15. TOPIRAMATE [Suspect]
     Route: 048
     Dates: start: 20090612, end: 20090614
  16. TOPIRAMATE [Suspect]
     Route: 048
     Dates: start: 20090612, end: 20090614
  17. TOPIRAMATE [Suspect]
     Route: 048
     Dates: start: 20090627, end: 20090703
  18. TOPIRAMATE [Suspect]
     Route: 048
     Dates: start: 20090525, end: 20090531
  19. TOPIRAMATE [Suspect]
     Route: 048
     Dates: start: 20090704, end: 20090710
  20. TOPIRAMATE [Suspect]
     Route: 048
     Dates: start: 20090608, end: 20090609
  21. TEGRETOL [Suspect]
     Route: 048
     Dates: start: 20090627, end: 20090813
  22. PHENYTOIN SODIUM CAP [Suspect]
     Route: 048
     Dates: start: 20091016, end: 20100402
  23. MIDAZOLAM HCL [Suspect]
     Indication: PRODUCT USED FOR UNKNOWN INDICATION
     Route: 048
     Dates: start: 20090524, end: 20090525
  24. MYSTAN [Concomitant]
     Route: 048
     Dates: start: 20100304, end: 20100402
  25. PHENOBARBITAL TAB [Concomitant]
     Route: 048
     Dates: end: 20090524
  26. TOPIRAMATE [Suspect]
     Route: 048
     Dates: start: 20090627, end: 20090703
  27. TOPIRAMATE [Suspect]
     Route: 048
     Dates: start: 20090718, end: 20091012
  28. PHENOBARBITAL TAB [Concomitant]
     Route: 048
     Dates: start: 20091005, end: 20100402
  29. MAGNESIUM OXIDE [Concomitant]
     Route: 048
     Dates: start: 20090310, end: 20100402
  30. TOPIRAMATE [Suspect]
     Route: 048
     Dates: start: 20090704, end: 20090710
  31. TOPIRAMATE [Suspect]
     Route: 048
     Dates: start: 20090525, end: 20090531
  32. TOPIRAMATE [Suspect]
     Route: 048
     Dates: start: 20090601, end: 20090607
  33. PHENYTOIN SODIUM CAP [Suspect]
     Indication: EPILEPSY
     Route: 048
     Dates: start: 20010101, end: 20091015
  34. MIDAZOLAM HCL [Suspect]
     Route: 048
     Dates: start: 20091001, end: 20091002
  35. MIDAZOLAM HCL [Suspect]
     Route: 048
     Dates: start: 20090626, end: 20090627
  36. MYSTAN [Concomitant]
     Route: 048
     Dates: end: 20090524
  37. ZONISAMIDE [Concomitant]
     Route: 048
     Dates: start: 20090605, end: 20090625

REACTIONS (4)
  - EPILEPSY [None]
  - NEAR DROWNING [None]
  - HYPERAMMONAEMIA [None]
  - LIVER DISORDER [None]
